FAERS Safety Report 15074686 (Version 1)
Quarter: 2018Q2

REPORT INFORMATION
  Report Type: Report from Study
  Country: US (occurrence: US)
  Receive Date: 20180627
  Receipt Date: 20180627
  Transmission Date: 20180711
  Serious: No
  Sender: FDA-Public Use
  Company Number: US-SAOL THERAPEUTICS-2017SAO01164

PATIENT
  Age: 54 Year
  Sex: Female

DRUGS (45)
  1. DILAUDID [Suspect]
     Active Substance: HYDROMORPHONE HYDROCHLORIDE
     Dosage: 2.280 MG, \DAY
     Route: 037
     Dates: start: 20150428, end: 20150625
  2. CLONIDINE. [Suspect]
     Active Substance: CLONIDINE
     Dosage: 101.93 ?G, \DAY
     Route: 037
     Dates: start: 20121219, end: 20130228
  3. CLONIDINE. [Suspect]
     Active Substance: CLONIDINE
     Dosage: 91.31 ?G, \DAY
     Route: 037
     Dates: start: 20140902, end: 20150428
  4. DROPERIDOL. [Suspect]
     Active Substance: DROPERIDOL
     Dosage: 152.02 ?G, \DAY
     Route: 037
     Dates: start: 20150428, end: 20150625
  5. COMPOUNDED BACLOFEN [Suspect]
     Active Substance: BACLOFEN
     Dosage: 166.68 ?G, \DAY
     Route: 037
     Dates: start: 20140612, end: 20140902
  6. COMPOUNDED BACLOFEN [Suspect]
     Active Substance: BACLOFEN
     Dosage: 250.03 ?G, \DAY
     Route: 037
     Dates: start: 20150428
  7. DILAUDID [Suspect]
     Active Substance: HYDROMORPHONE HYDROCHLORIDE
     Dosage: 1.0001 MG, \DAY
     Route: 037
     Dates: start: 20140612, end: 20140902
  8. BUPIVACAINE. [Suspect]
     Active Substance: BUPIVACAINE
     Dosage: 10.001 MG, \DAY
     Route: 037
     Dates: start: 20140612, end: 20140902
  9. BUPIVACAINE. [Suspect]
     Active Substance: BUPIVACAINE
     Dosage: 22.802 MG, \DAY
     Route: 037
     Dates: start: 20150428, end: 20150625
  10. DROPERIDOL. [Suspect]
     Active Substance: DROPERIDOL
     Dosage: 119.92 ?G, \DAY
     Route: 037
     Dates: start: 20121219, end: 20140612
  11. COMPOUNDED BACLOFEN [Suspect]
     Active Substance: BACLOFEN
     Dosage: 254.82 ?G, \DAY
     Route: 037
     Dates: start: 20121219, end: 20130228
  12. COMPOUNDED BACLOFEN [Suspect]
     Active Substance: BACLOFEN
     Dosage: 380.04 ?G, \DAY
     Route: 037
     Dates: start: 20150428, end: 20150625
  13. COMPOUNDED BACLOFEN [Suspect]
     Active Substance: BACLOFEN
     Dosage: 328.03 ?G, \DAY
     Route: 037
     Dates: start: 20150625
  14. DILAUDID [Suspect]
     Active Substance: HYDROMORPHONE HYDROCHLORIDE
     Dosage: 1.1992 MG, \DAY
     Route: 037
     Dates: start: 20121219, end: 20140612
  15. BUPIVACAINE. [Suspect]
     Active Substance: BUPIVACAINE
     Dosage: 19.682 MG, \DAY
     Route: 037
     Dates: start: 20150625
  16. COMPOUNDED BACLOFEN [Suspect]
     Active Substance: BACLOFEN
     Dosage: 226.13 ?G, \DAY
     Route: 037
     Dates: start: 20140612, end: 20140902
  17. COMPOUNDED BACLOFEN [Suspect]
     Active Substance: BACLOFEN
     Dosage: 228.28 ?G, \DAY
     Route: 037
     Dates: start: 20140902, end: 20150428
  18. DILAUDID [Suspect]
     Active Substance: HYDROMORPHONE HYDROCHLORIDE
     Dosage: 1.528 MG, \DAY
     Route: 037
     Dates: start: 20121219, end: 20130228
  19. DILAUDID [Suspect]
     Active Substance: HYDROMORPHONE HYDROCHLORIDE
     Dosage: 1.369 MG, \DAY
     Route: 037
     Dates: start: 20140902, end: 20150428
  20. DILAUDID [Suspect]
     Active Substance: HYDROMORPHONE HYDROCHLORIDE
     Dosage: 1.5002 MG, \DAY
     Route: 037
     Dates: start: 20150428, end: 20150625
  21. DILAUDID [Suspect]
     Active Substance: HYDROMORPHONE HYDROCHLORIDE
     Dosage: 1.968 MG, \DAY
     Route: 037
     Dates: start: 20150625
  22. BUPIVACAINE. [Suspect]
     Active Substance: BUPIVACAINE
     Dosage: 16.098 MG, \DAY
     Route: 037
     Dates: start: 20130228, end: 20140612
  23. BUPIVACAINE. [Suspect]
     Active Substance: BUPIVACAINE
     Dosage: 13.568 MG, \DAY
     Route: 037
     Dates: start: 20140612, end: 20140902
  24. CLONIDINE. [Suspect]
     Active Substance: CLONIDINE
     Dosage: 66.67 ?G, \DAY
     Route: 037
     Dates: start: 20140612, end: 20140902
  25. CLONIDINE. [Suspect]
     Active Substance: CLONIDINE
     Dosage: 152.02 ?G, \DAY
     Route: 037
     Dates: start: 20150428, end: 20150625
  26. DROPERIDOL. [Suspect]
     Active Substance: DROPERIDOL
     Dosage: 160.98 ?G, \DAY
     Route: 037
     Dates: start: 20130228, end: 20140612
  27. COMPOUNDED BACLOFEN [Suspect]
     Active Substance: BACLOFEN
     Dosage: 268.30 ?G, \DAY
     Route: 037
     Dates: start: 20130228, end: 20140612
  28. BUPIVACAINE. [Suspect]
     Active Substance: BUPIVACAINE
     Dosage: 13.697 MG, \DAY
     Route: 037
     Dates: start: 20140902, end: 20150428
  29. CLONIDINE. [Suspect]
     Active Substance: CLONIDINE
     Dosage: 79.94 ?G, \DAY
     Route: 037
     Dates: start: 20121219, end: 20140612
  30. CLONIDINE. [Suspect]
     Active Substance: CLONIDINE
     Dosage: 131.21 ?G, \DAY
     Route: 037
     Dates: start: 20150625
  31. DROPERIDOL. [Suspect]
     Active Substance: DROPERIDOL
     Dosage: 131.21 ?G, \DAY
     Route: 037
     Dates: start: 20150625
  32. COMPOUNDED BACLOFEN [Suspect]
     Active Substance: BACLOFEN
     Dosage: 199.86 ?G, \DAY
     Route: 037
     Dates: start: 20121219, end: 20140612
  33. DILAUDID [Suspect]
     Active Substance: HYDROMORPHONE HYDROCHLORIDE
     Dosage: 1.609 MG, \DAY
     Route: 037
     Dates: start: 20130228, end: 20140612
  34. BUPIVACAINE. [Suspect]
     Active Substance: BUPIVACAINE
     Dosage: 11.992 MG, \DAY
     Route: 037
     Dates: start: 20121219, end: 20140612
  35. DROPERIDOL. [Suspect]
     Active Substance: DROPERIDOL
     Dosage: 152.89 ?G, \DAY
     Route: 037
     Dates: start: 20121219, end: 20130228
  36. DILAUDID [Suspect]
     Active Substance: HYDROMORPHONE HYDROCHLORIDE
     Dosage: 1.356 MG, \DAY
     Route: 037
     Dates: start: 20140612, end: 20140902
  37. BUPIVACAINE. [Suspect]
     Active Substance: BUPIVACAINE
     Dosage: 15.002 MG, \DAY
     Route: 037
     Dates: start: 20150428, end: 20150625
  38. CLONIDINE. [Suspect]
     Active Substance: CLONIDINE
     Dosage: 107.32 ?G, \DAY
     Route: 037
     Dates: start: 20130228, end: 20140612
  39. DROPERIDOL. [Suspect]
     Active Substance: DROPERIDOL
     Dosage: 90.45 ?G, \DAY
     Route: 037
     Dates: start: 20140612, end: 20140902
  40. BUPIVACAINE. [Suspect]
     Active Substance: BUPIVACAINE
     Dosage: 15.289 MG, \DAY
     Route: 037
     Dates: start: 20121219, end: 20130228
  41. CLONIDINE. [Suspect]
     Active Substance: CLONIDINE
     Dosage: 90.45 ?G, \DAY
     Route: 037
     Dates: start: 20140612, end: 20140902
  42. CLONIDINE. [Suspect]
     Active Substance: CLONIDINE
     Dosage: 100.01 ?G, \DAY
     Route: 037
     Dates: start: 20150428, end: 20150625
  43. DROPERIDOL. [Suspect]
     Active Substance: DROPERIDOL
     Dosage: 66.67 ?G, \DAY
     Route: 037
     Dates: start: 20140612, end: 20140902
  44. DROPERIDOL. [Suspect]
     Active Substance: DROPERIDOL
     Dosage: 91.31 ?G, \DAY
     Route: 037
     Dates: start: 20140902, end: 20150428
  45. DROPERIDOL. [Suspect]
     Active Substance: DROPERIDOL
     Dosage: 100.01 ?G, \DAY
     Route: 037
     Dates: start: 20150428, end: 20150625

REACTIONS (1)
  - Implant site pain [Recovered/Resolved]

NARRATIVE: CASE EVENT DATE: 20130228
